FAERS Safety Report 13129759 (Version 3)
Quarter: 2017Q2

REPORT INFORMATION
  Report Type: Spontaneous
  Country: US (occurrence: US)
  Receive Date: 20170119
  Receipt Date: 20170418
  Transmission Date: 20170830
  Serious: No
  Sender: FDA-Public Use
  Company Number: US-PFIZER INC-2017021968

PATIENT
  Age: 78 Year
  Sex: Male
  Weight: 88 kg

DRUGS (2)
  1. LIPITOR [Suspect]
     Active Substance: ATORVASTATIN CALCIUM
     Indication: BLOOD CHOLESTEROL INCREASED
     Dosage: 10 MG (20MG TABLET, 1/2 TABLET ONCE DAILY BY MOUTH)
     Route: 048
     Dates: start: 20170105, end: 20170113
  2. METFORMIN [Concomitant]
     Active Substance: METFORMIN HYDROCHLORIDE
     Indication: DIABETES MELLITUS
     Dosage: 500MG, ONCE DAILY WITH BREAKFAST
     Dates: start: 201509

REACTIONS (2)
  - Muscular weakness [Recovering/Resolving]
  - Limb discomfort [Recovering/Resolving]
